FAERS Safety Report 15350471 (Version 1)
Quarter: 2018Q4

REPORT INFORMATION
  Report Type: Spontaneous
  Country: DE (occurrence: DE)
  Receive Date: 20180905
  Receipt Date: 20180905
  Transmission Date: 20190204
  Serious: Yes (Death, Congenital Anomaly)
  Sender: FDA-Public Use
  Company Number: DE-TEVA-2018-DE-951327

PATIENT
  Age: 0 Year
  Sex: Male

DRUGS (7)
  1. CYTOTEC [Concomitant]
     Active Substance: MISOPROSTOL
     Indication: ABORTION INDUCED
     Route: 064
     Dates: start: 20171218, end: 20171223
  2. LEVETIRACETAM. [Suspect]
     Active Substance: LEVETIRACETAM
     Indication: EPILEPSY
     Dosage: 1500 MILLIGRAM DAILY;
     Route: 064
     Dates: start: 20171002, end: 20171223
  3. L-THYROXIN 50 [Concomitant]
     Active Substance: LEVOTHYROXINE SODIUM
     Indication: AUTOIMMUNE THYROIDITIS
     Route: 064
     Dates: start: 20171002, end: 20171223
  4. CANDESARTAN. [Suspect]
     Active Substance: CANDESARTAN
     Indication: HYPERTENSION
     Dosage: 16 MILLIGRAM DAILY;
     Route: 064
     Dates: start: 20171002, end: 20171103
  5. PAROXETIN [Suspect]
     Active Substance: PAROXETINE HYDROCHLORIDE
     Indication: DEPRESSION
     Dosage: 30 MILLIGRAM DAILY;
     Route: 064
     Dates: start: 20171002, end: 20171103
  6. NEPRESOL (DIHYDRALAZINE SULFATE) [Suspect]
     Active Substance: DIHYDRALAZINE SULFATE
     Indication: HYPERTENSION
     Dosage: 25 MILLIGRAM DAILY;
     Route: 064
     Dates: start: 20171103, end: 20171223
  7. ESCITALOPRAM [Suspect]
     Active Substance: ESCITALOPRAM OXALATE
     Indication: DEPRESSION
     Dosage: 220 MILLIGRAM DAILY; 20 [MG/D ]
     Route: 064
     Dates: start: 20171103, end: 20171223

REACTIONS (2)
  - Anencephaly [Fatal]
  - Foetal exposure during pregnancy [Unknown]
